FAERS Safety Report 24832054 (Version 1)
Quarter: 2025Q1

REPORT INFORMATION
  Report Type: Spontaneous
  Country: US (occurrence: None)
  Receive Date: 20250110
  Receipt Date: 20250110
  Transmission Date: 20250409
  Serious: No
  Sender: FDA-CTU
  Company Number: None

PATIENT
  Sex: Female
  Weight: 72.57 kg

DRUGS (1)
  1. ICY HOT MEDICATED [Suspect]
     Active Substance: MENTHOL
     Indication: Muscle strain
     Route: 050
     Dates: start: 20241227, end: 20241228

REACTIONS (1)
  - Nasopharyngitis [None]
